FAERS Safety Report 9350226 (Version 1)
Quarter: 2013Q2

REPORT INFORMATION
  Report Type: Report from Study
  Country: SE (occurrence: SE)
  Receive Date: 20130617
  Receipt Date: 20130617
  Transmission Date: 20140414
  Serious: Yes (Hospitalization)
  Sender: FDA-Public Use
  Company Number: SE-AMGEN-SWECT2011041310

PATIENT
  Age: 56 Year
  Sex: Female

DRUGS (2)
  1. ETANERCEPT [Suspect]
     Indication: ANKYLOSING SPONDYLITIS
     Dosage: 25 MG, UNK
     Route: 058
     Dates: start: 20071205, end: 20071215
  2. CELEBRA [Concomitant]
     Dosage: UNK

REACTIONS (1)
  - Subarachnoid haemorrhage [Recovered/Resolved]
